FAERS Safety Report 5734183-8 (Version None)
Quarter: 2008Q2

REPORT INFORMATION
  Report Type: 
  Country: None (occurrence: None)
  Receive Date: 20080510
  Receipt Date: 20080506
  Transmission Date: 20081010
  Serious: Yes (Hospitalization, Other)
  Sender: FDA-Public Use
  Company Number: PHEH2007US15340

PATIENT
  Age: 93 Year
  Sex: Male

DRUGS (2)
  1. NAMENDA [Suspect]
  2. EXELON [Suspect]
     Indication: DEMENTIA

REACTIONS (6)
  - DYSURIA [None]
  - HALLUCINATION [None]
  - HYPERTENSION [None]
  - MUSCULOSKELETAL DISCOMFORT [None]
  - NEPHROLITHIASIS [None]
  - URINARY TRACT INFECTION [None]
